FAERS Safety Report 21908145 (Version 1)
Quarter: 2023Q1

REPORT INFORMATION
  Report Type: Spontaneous
  Country: US (occurrence: None)
  Receive Date: 20230124
  Receipt Date: 20230124
  Transmission Date: 20230417
  Serious: Yes (Death)
  Sender: FDA-Public Use
  Company Number: None

PATIENT
  Age: 64 Year
  Sex: Male
  Weight: 69.5 kg

DRUGS (5)
  1. ALVIMOPAN [Suspect]
     Active Substance: ALVIMOPAN
  2. ALBUTEROL\IPRATROPIUM [Concomitant]
     Active Substance: ALBUTEROL\IPRATROPIUM
     Dates: start: 20230116, end: 20230120
  3. LACTICASEIBACILLUS RHAMNOSUS GG [Concomitant]
     Active Substance: LACTICASEIBACILLUS RHAMNOSUS GG
     Dates: start: 20230119, end: 20230120
  4. MAGNESIUM HYDROXIDE [Concomitant]
     Active Substance: MAGNESIUM HYDROXIDE
     Dates: start: 20230119, end: 20230120
  5. Sodium Chloride 0.9% I Fluid [Concomitant]
     Dates: start: 20230117, end: 20230120

REACTIONS (1)
  - Cardio-respiratory arrest [None]

NARRATIVE: CASE EVENT DATE: 20230120
